FAERS Safety Report 10232590 (Version 2)
Quarter: 2014Q2

REPORT INFORMATION
  Report Type: Report from Study
  Country: US (occurrence: US)
  Receive Date: 20140612
  Receipt Date: 20140612
  Transmission Date: 20141212
  Serious: Yes (Hospitalization, Other)
  Sender: FDA-Public Use
  Company Number: US-ASTRAZENECA-2013SE37865

PATIENT
  Age: 65 Year
  Sex: Female

DRUGS (6)
  1. NEXIUM [Suspect]
     Dosage: EVERY OTHER DAY
     Route: 048
  2. NEXIUM [Suspect]
     Route: 048
  3. DEXILANT [Suspect]
     Route: 065
  4. LOSARTAN [Concomitant]
  5. CALCIUM/ VITAMIN D3 [Concomitant]
     Dosage: 1700 MG / 1000 VITAMIN D3
  6. ASPIRIN [Concomitant]

REACTIONS (6)
  - Vomiting [Unknown]
  - Heat exhaustion [Unknown]
  - Asthenia [Unknown]
  - Malaise [Unknown]
  - Nausea [Unknown]
  - Intentional product misuse [Unknown]
